FAERS Safety Report 20907430 (Version 1)
Quarter: 2022Q2

REPORT INFORMATION
  Report Type: Spontaneous
  Country: US (occurrence: US)
  Receive Date: 20220602
  Receipt Date: 20220602
  Transmission Date: 20220721
  Serious: Yes (Hospitalization, Other)
  Sender: FDA-Public Use
  Company Number: US-BRISTOL-MYERS SQUIBB COMPANY-2022-035395

PATIENT
  Age: 61 Year
  Sex: Male

DRUGS (1)
  1. REVLIMID [Suspect]
     Active Substance: LENALIDOMIDE
     Indication: Plasma cell myeloma
     Route: 048

REACTIONS (7)
  - Pyrexia [Unknown]
  - Large intestinal haemorrhage [Unknown]
  - Haemorrhoids [Unknown]
  - Colitis [Unknown]
  - Cyst [Unknown]
  - Blood glucose decreased [Unknown]
  - Off label use [Unknown]
